FAERS Safety Report 11845803 (Version 4)
Quarter: 2016Q2

REPORT INFORMATION
  Report Type: Spontaneous
  Country: US (occurrence: US)
  Receive Date: 20151217
  Receipt Date: 20160627
  Transmission Date: 20160815
  Serious: Yes (Other)
  Sender: FDA-Public Use
  Company Number: US-PFIZER INC-2015452320

PATIENT
  Age: 44 Year
  Sex: Male

DRUGS (5)
  1. DEPO-TESTOSTERONE [Suspect]
     Active Substance: TESTOSTERONE CYPIONATE
     Indication: ASTHENIA
     Dosage: 1 DF, 1X/DAY (ONCE EACH INJECTION)
     Dates: start: 20120703, end: 20120703
  2. DEPO-TESTOSTERONE [Suspect]
     Active Substance: TESTOSTERONE CYPIONATE
     Dosage: UNK
     Dates: start: 201304, end: 201304
  3. DEPO-TESTOSTERONE [Suspect]
     Active Substance: TESTOSTERONE CYPIONATE
     Dosage: 1 DF, 1X/DAY (ONCE EACH INJECTION)
     Dates: start: 20130401, end: 20130401
  4. DEPO-TESTOSTERONE [Suspect]
     Active Substance: TESTOSTERONE CYPIONATE
     Indication: HORMONE REPLACEMENT THERAPY
     Dosage: UNK, SHOTS TWICE PER MONTH
     Dates: start: 20120703, end: 20130501
  5. DEPO-TESTOSTERONE [Suspect]
     Active Substance: TESTOSTERONE CYPIONATE
     Indication: LIBIDO DECREASED
     Dosage: UNK
     Dates: start: 201207, end: 201207

REACTIONS (4)
  - Cerebrovascular accident [Unknown]
  - Ischaemia [Unknown]
  - Deafness [Not Recovered/Not Resolved]
  - Blindness [Not Recovered/Not Resolved]

NARRATIVE: CASE EVENT DATE: 20130510
